FAERS Safety Report 7971329-5 (Version None)
Quarter: 2011Q4

REPORT INFORMATION
  Report Type: 
  Country: None (occurrence: None)
  Receive Date: 20111212
  Receipt Date: 20111206
  Transmission Date: 20120403
  Serious: Yes (Other)
  Sender: FDA-Public Use
  Company Number: JP-PFIZER INC-2011297826

PATIENT
  Weight: 17 kg

DRUGS (4)
  1. CIPROFLOXACIN HCL [Concomitant]
  2. MICAFUNGIN SODIUM [Concomitant]
  3. CLINDAMYCIN HCL [Suspect]
     Route: 042
  4. VFEND [Suspect]
     Route: 042

REACTIONS (1)
  - CARDIAC ARREST [None]
